FAERS Safety Report 7542494 (Version 3)
Quarter: 2013Q1

REPORT INFORMATION
  Report Type: Spontaneous
  Country: US (occurrence: US)
  Receive Date: 20100816
  Receipt Date: 20130211
  Transmission Date: 20140127
  Serious: Yes (Other)
  Sender: FDA-Public Use
  Company Number: US-BAYER-201019287NA

PATIENT
  Age: 20 Year
  Sex: Female

DRUGS (1)
  1. MIRENA [Suspect]
     Indication: CONTRACEPTION
     Dosage: 20 MCG/24HR, CONT
     Route: 015
     Dates: start: 2008

REACTIONS (10)
  - Pregnancy with contraceptive device [Recovered/Resolved]
  - Menstruation delayed [Recovered/Resolved]
  - Blighted ovum [None]
  - Malaise [None]
  - Lethargy [None]
  - Dizziness [None]
  - Disturbance in attention [None]
  - Presyncope [None]
  - Stress [None]
  - Drug ineffective [None]
